FAERS Safety Report 7402693-3 (Version None)
Quarter: 2011Q1

REPORT INFORMATION
  Report Type: 
  Country: None (occurrence: None)
  Receive Date: 20110330
  Receipt Date: 20110308
  Transmission Date: 20110831
  Serious: Yes (Death)
  Sender: FDA-Public Use
  Company Number: JPI-P-013191

PATIENT
  Age: 77 Year
  Sex: Male
  Weight: 85.9566 kg

DRUGS (5)
  1. ZOLPIDEM [Concomitant]
  2. XYREM [Suspect]
     Indication: INSOMNIA
     Dosage: SEE IMAGE
     Route: 048
     Dates: end: 20101122
  3. XYREM [Suspect]
     Indication: INSOMNIA
     Dosage: SEE IMAGE
     Route: 048
     Dates: start: 20081104
  4. XYREM [Suspect]
     Indication: INSOMNIA
     Dosage: SEE IMAGE
     Route: 048
     Dates: start: 20060601, end: 20081103
  5. XYREM [Suspect]
     Indication: INSOMNIA
     Dosage: SEE IMAGE
     Route: 048
     Dates: start: 20051208, end: 20060601

REACTIONS (9)
  - MUSCLE SPASMS [None]
  - FATIGUE [None]
  - DYSPEPSIA [None]
  - PAIN IN EXTREMITY [None]
  - PULSE ABSENT [None]
  - ACUTE CORONARY SYNDROME [None]
  - CONFUSIONAL STATE [None]
  - PAIN [None]
  - FEELING ABNORMAL [None]
